FAERS Safety Report 8911558 (Version 1)
Quarter: 2012Q4

REPORT INFORMATION
  Report Type: Report from Study
  Country: US (occurrence: US)
  Receive Date: 20121115
  Receipt Date: 20121115
  Transmission Date: 20130627
  Serious: Yes (Hospitalization, Other)
  Sender: FDA-Public Use
  Company Number: US-BAXTER-2012BAX023328

PATIENT
  Age: 3 Year
  Sex: Female

DRUGS (34)
  1. CYCLOPHOSPHAMIDE FOR INJECTION, USP [Suspect]
     Indication: ACUTE LYMPHOCYTIC LEUKAEMIA
     Route: 042
     Dates: start: 20120725, end: 20120727
  2. IFOSFAMIDE [Suspect]
     Indication: ACUTE LYMPHOCYTIC LEUKAEMIA
     Route: 042
     Dates: start: 20120815, end: 20120817
  3. ETOPOSIDE [Suspect]
     Indication: ACUTE LYMPHOCYTIC LEUKAEMIA
     Route: 042
     Dates: start: 20120907, end: 20120908
  4. ETOPOSIDE [Suspect]
     Route: 042
     Dates: start: 20120909
  5. DASATINIB [Suspect]
     Indication: ACUTE LYMPHOCYTIC LEUKAEMIA
     Route: 048
     Dates: start: 20120430
  6. DAUNORUBICIN [Suspect]
     Indication: ACUTE LYMPHOCYTIC LEUKAEMIA
     Route: 042
     Dates: start: 20120416, end: 20120818
  7. DEXAMETHASONE [Suspect]
     Indication: ACUTE LYMPHOCYTIC LEUKAEMIA
     Route: 048
     Dates: start: 20120416, end: 20120429
  8. DEXAMETHASONE [Suspect]
     Route: 048
     Dates: start: 20120724, end: 20120729
  9. DEXAMETHASONE [Suspect]
     Route: 048
     Dates: start: 20120814, end: 20120819
  10. DEXAMETHASONE [Suspect]
     Route: 048
     Dates: start: 20120905
  11. DEXAMETHASONE [Suspect]
     Route: 048
     Dates: start: 20120906, end: 20120909
  12. DEXAMETHASONE [Suspect]
     Route: 048
     Dates: start: 20120910
  13. METHOTREXATE SODIUM [Suspect]
     Indication: ACUTE LYMPHOCYTIC LEUKAEMIA
     Route: 037
     Dates: start: 20120423
  14. METHOTREXATE SODIUM [Suspect]
     Route: 042
     Dates: start: 20120724
  15. METHOTREXATE SODIUM [Suspect]
     Route: 042
     Dates: start: 20120814
  16. METHOTREXATE SODIUM [Suspect]
     Route: 037
     Dates: start: 20120909
  17. ASPARAGINASE [Suspect]
     Indication: DRUG USE FOR UNKNOWN INDICATION
     Dosage: 17500 units
     Route: 042
     Dates: start: 20120819
  18. HYDROCORTISONE [Suspect]
     Indication: ALLERGIC REACTION
     Route: 065
     Dates: start: 20120819
  19. HYDROCORTISONE [Suspect]
     Route: 037
     Dates: start: 20120909
  20. CYTARABINE [Suspect]
     Indication: ACUTE LYMPHOCYTIC LEUKAEMIA
     Route: 037
     Dates: start: 20120416
  21. CYTARABINE [Suspect]
     Route: 042
     Dates: start: 20120728
  22. CYTARABINE [Suspect]
     Route: 037
     Dates: start: 20120814
  23. CYTARABINE [Suspect]
     Route: 042
     Dates: start: 20120905, end: 20120906
  24. CYTARABINE [Suspect]
     Route: 037
     Dates: start: 20120909
  25. VINCRISTINE [Suspect]
     Indication: ACUTE LYMPHOBLASTIC LEUKEMIA
     Route: 042
     Dates: start: 20120416, end: 20120430
  26. VINCRISTINE [Suspect]
     Route: 042
     Dates: start: 20120815
  27. VINCRISTINE [Suspect]
     Route: 042
     Dates: start: 20120819
  28. PEGASPARGASE [Suspect]
     Indication: DRUG USE FOR UNKNOWN INDICATION
     Route: 065
     Dates: start: 20120419
  29. PEGASPARGASE [Suspect]
     Route: 065
     Dates: start: 20120820
  30. PEGASPARGASE [Suspect]
     Route: 065
     Dates: start: 20120910
  31. NYSTATIN [Concomitant]
     Indication: DRUG USE FOR UNKNOWN INDICATION
     Route: 065
     Dates: start: 20120422
  32. ZANTAC [Concomitant]
     Indication: DRUG USE FOR UNKNOWN INDICATION
     Route: 065
     Dates: start: 20120416, end: 20120820
  33. ZOFRAN [Concomitant]
     Indication: DRUG USE FOR UNKNOWN INDICATION
     Route: 065
     Dates: start: 20120430, end: 20120820
  34. FUROSEMIDE [Concomitant]
     Indication: DRUG USE FOR UNKNOWN INDICATION
     Route: 065
     Dates: start: 20120427, end: 20120429

REACTIONS (6)
  - Device related infection [Recovered/Resolved]
  - Neutropenia [Recovered/Resolved]
  - Escherichia bacteraemia [Recovered/Resolved]
  - Hypersensitivity [Recovered/Resolved]
  - Mucosal inflammation [Recovered/Resolved]
  - Febrile neutropenia [Recovered/Resolved]
